FAERS Safety Report 14288231 (Version 5)
Quarter: 2018Q2

REPORT INFORMATION
  Report Type: Spontaneous
  Country: DE (occurrence: DE)
  Receive Date: 20171214
  Receipt Date: 20180609
  Transmission Date: 20180711
  Serious: Yes (Hospitalization, Other)
  Sender: FDA-Public Use
  Company Number: DE-TEVA-2017-DE-831050

PATIENT
  Age: 76 Year
  Sex: Female
  Weight: 71 kg

DRUGS (5)
  1. CIPROFLOXACIN. [Suspect]
     Active Substance: CIPROFLOXACIN
     Indication: PNEUMONIA
     Route: 065
     Dates: start: 20170514
  2. PANTOPRAZOLE [Concomitant]
     Active Substance: PANTOPRAZOLE
     Dosage: 40 MILLIGRAM DAILY;
     Route: 065
  3. MIRTAZAPIN [Concomitant]
     Active Substance: MIRTAZAPINE
     Dates: start: 2010
  4. CIPROFLOXACIN. [Suspect]
     Active Substance: CIPROFLOXACIN
     Dates: start: 20130616
  5. ZOLPIDEM [Concomitant]
     Active Substance: ZOLPIDEM\ZOLPIDEM TARTRATE
     Dosage: 5 MILLIGRAM DAILY;
     Route: 065

REACTIONS (33)
  - Panic attack [Unknown]
  - Diarrhoea [Unknown]
  - Social avoidant behaviour [Recovering/Resolving]
  - Abdominal distension [Recovering/Resolving]
  - Pneumonia [Unknown]
  - Weight decreased [Unknown]
  - Abdominal pain upper [Recovering/Resolving]
  - Fear of death [Recovering/Resolving]
  - Hyperhidrosis [Recovering/Resolving]
  - Hyperhidrosis [Unknown]
  - Vomiting [Unknown]
  - Depression [Recovering/Resolving]
  - Intestinal mucosal atrophy [Recovering/Resolving]
  - Pain [Recovering/Resolving]
  - Depression [Unknown]
  - Abdominal discomfort [Unknown]
  - Asthenia [Unknown]
  - Sleep disorder [Recovering/Resolving]
  - Hypotonia [Recovering/Resolving]
  - Adjustment disorder [Recovering/Resolving]
  - Decreased appetite [Recovering/Resolving]
  - Iritis [Recovering/Resolving]
  - Impaired quality of life [Unknown]
  - Chest discomfort [Recovering/Resolving]
  - Pyrexia [Recovering/Resolving]
  - Urinary tract infection [Recovering/Resolving]
  - Feeling cold [Recovering/Resolving]
  - Anxiety [Recovering/Resolving]
  - Nausea [Recovering/Resolving]
  - Cough [Recovering/Resolving]
  - Decreased appetite [Unknown]
  - Decreased activity [Recovering/Resolving]
  - Insomnia [Recovering/Resolving]

NARRATIVE: CASE EVENT DATE: 201705
